FAERS Safety Report 25837702 (Version 1)
Quarter: 2025Q3

REPORT INFORMATION
  Report Type: Spontaneous
  Country: US (occurrence: US)
  Receive Date: 20250923
  Receipt Date: 20250923
  Transmission Date: 20251021
  Serious: Yes (Other)
  Sender: ELI LILLY AND COMPANY
  Company Number: US-ELI_LILLY_AND_COMPANY-US202509001601

PATIENT
  Age: 69 Year
  Sex: Male
  Weight: 81.633 kg

DRUGS (3)
  1. BASAGLAR [Suspect]
     Active Substance: INSULIN GLARGINE
     Indication: Product used for unknown indication
     Route: 065
  2. GLUCAGON [Suspect]
     Active Substance: GLUCAGON
     Indication: Hypoglycaemia
     Route: 065
  3. NOVOLOG [Concomitant]
     Active Substance: INSULIN ASPART
     Indication: Product used for unknown indication

REACTIONS (7)
  - Diabetic ketoacidosis [Unknown]
  - Blood glucose decreased [Unknown]
  - Hypoglycaemia [Unknown]
  - Moaning [Unknown]
  - Confusional state [Unknown]
  - Disorientation [Unknown]
  - Fall [Unknown]
